FAERS Safety Report 17779996 (Version 1)
Quarter: 2020Q2

REPORT INFORMATION
  Report Type: Spontaneous
  Country: AT (occurrence: AT)
  Receive Date: 20200513
  Receipt Date: 20200513
  Transmission Date: 20200714
  Serious: Yes (Life-Threatening, Hospitalization)
  Sender: FDA-Public Use
  Company Number: NVSC2020AT128510

PATIENT
  Sex: Male

DRUGS (1)
  1. SEDACORON 200MG TABLETS [Suspect]
     Active Substance: AMIODARONE HYDROCHLORIDE
     Indication: ARRHYTHMIA
     Dosage: 600 MG (3X200MG)
     Route: 048

REACTIONS (2)
  - Panic attack [Unknown]
  - Suicidal ideation [Unknown]
